FAERS Safety Report 5426029-2 (Version None)
Quarter: 2007Q3

REPORT INFORMATION
  Report Type: 
  Country: None (occurrence: None)
  Receive Date: 20070827
  Receipt Date: 20070815
  Transmission Date: 20080115
  Serious: Yes (Hospitalization)
  Sender: FDA-Public Use
  Company Number: US-GENENTECH-244743

PATIENT
  Sex: Female

DRUGS (6)
  1. RAPTIVA [Suspect]
     Indication: PSORIASIS
     Dates: start: 20070501
  2. TOPICAL MEDICATION [Concomitant]
     Indication: PSORIASIS
  3. VYTORIN [Concomitant]
     Indication: BLOOD CHOLESTEROL INCREASED
  4. ALLEGRA [Concomitant]
     Indication: SEASONAL ALLERGY
  5. FLUTICASONE PROPIONATE [Concomitant]
     Indication: SEASONAL ALLERGY
  6. ASPIRIN [Concomitant]
     Indication: DRUG USE FOR UNKNOWN INDICATION
     Dosage: 1 TABLET, QD

REACTIONS (1)
  - CEREBROVASCULAR ACCIDENT [None]
